FAERS Safety Report 6354461-1 (Version None)
Quarter: 2009Q3

REPORT INFORMATION
  Report Type: 
  Country: None (occurrence: None)
  Receive Date: 20090910
  Receipt Date: 20090902
  Transmission Date: 20100115
  Serious: Yes (Other)
  Sender: FDA-Public Use
  Company Number: WAES 0909USA00646

PATIENT
  Age: 72 Year
  Sex: Female

DRUGS (5)
  1. HYZAAR [Suspect]
     Indication: HYPERTENSION
     Dosage: 1 TAB/DAILY PO
     Route: 048
     Dates: start: 20080524, end: 20080913
  2. OI ACTOS (PIOGLITAZONE HYDROCHLORIDE) [Suspect]
     Indication: DIABETES MELLITUS
     Dosage: 15 MG/DAILY PO
     Route: 048
     Dates: start: 20080729, end: 20080913
  3. AMARYL [Concomitant]
  4. ASPIRIN [Concomitant]
  5. ERYTHROMYCIN [Concomitant]

REACTIONS (2)
  - CARDIAC FAILURE [None]
  - COUGH [None]
